FAERS Safety Report 10248766 (Version 2)
Quarter: 2014Q2

REPORT INFORMATION
  Report Type: Spontaneous
  Country: SK (occurrence: SK)
  Receive Date: 20140620
  Receipt Date: 20140627
  Transmission Date: 20141212
  Serious: Yes (Death, Hospitalization)
  Sender: FDA-Public Use
  Company Number: SK-ELI_LILLY_AND_COMPANY-SK201406005350

PATIENT
  Age: 47 Year
  Sex: Female

DRUGS (4)
  1. ALIMTA [Suspect]
     Indication: NON-SMALL CELL LUNG CANCER
     Dosage: 700 MG, UNKNOWN
     Route: 042
     Dates: start: 20120523
  2. CISPLATIN [Concomitant]
     Indication: NON-SMALL CELL LUNG CANCER
  3. FOLIC ACID [Concomitant]
     Dosage: 800 UG, QD
  4. CYANOCOBALAMIN [Concomitant]
     Dosage: 1000 UG, EVERY 9 WEEKS
     Route: 030

REACTIONS (1)
  - Gastric ulcer perforation [Fatal]
